FAERS Safety Report 4689965-0 (Version None)
Quarter: 2005Q2

REPORT INFORMATION
  Report Type: 
  Country: None (occurrence: None)
  Receive Date: 20050608
  Receipt Date: 20050316
  Transmission Date: 20051028
  Serious: Yes (Other)
  Sender: FDA-Public Use
  Company Number: 398958

PATIENT
  Age: 20 Year
  Sex: Female
  Weight: 49.9 kg

DRUGS (2)
  1. ACCUTANE [Suspect]
     Indication: ACNE
     Dosage: 20 MG DAILY ORAL
     Route: 048
     Dates: start: 20041217
  2. DIET PILL (DIET AID NOS) [Concomitant]

REACTIONS (1)
  - BLOOD CREATINE PHOSPHOKINASE INCREASED [None]
